FAERS Safety Report 13379944 (Version 1)
Quarter: 2017Q1

REPORT INFORMATION
  Report Type: Spontaneous
  Country: US (occurrence: US)
  Receive Date: 20170328
  Receipt Date: 20170328
  Transmission Date: 20170429
  Serious: Yes (Other)
  Sender: FDA-Public Use
  Company Number: US-ELI_LILLY_AND_COMPANY-US201608005490

PATIENT

DRUGS (3)
  1. CYMBALTA [Suspect]
     Active Substance: DULOXETINE HYDROCHLORIDE
     Dosage: 90 MG, QD
     Route: 048
  2. CYMBALTA [Suspect]
     Active Substance: DULOXETINE HYDROCHLORIDE
     Indication: PRODUCT USED FOR UNKNOWN INDICATION
     Dosage: UNK, UNKNOWN
     Route: 048
  3. CYMBALTA [Suspect]
     Active Substance: DULOXETINE HYDROCHLORIDE
     Dosage: 60 MG, QD
     Route: 048

REACTIONS (11)
  - Drug withdrawal syndrome [Unknown]
  - Depression [Unknown]
  - Vertigo [Unknown]
  - Dysphoria [Unknown]
  - Memory impairment [Unknown]
  - Headache [Unknown]
  - Agitation [Unknown]
  - Dizziness [Unknown]
  - Irritability [Unknown]
  - Thinking abnormal [Unknown]
  - Suicidal ideation [Unknown]
